FAERS Safety Report 17745164 (Version 1)
Quarter: 2020Q2

REPORT INFORMATION
  Report Type: Report from Study
  Country: US (occurrence: US)
  Receive Date: 20200504
  Receipt Date: 20200504
  Transmission Date: 20200714
  Serious: Yes (Death)
  Sender: FDA-Public Use
  Company Number: US-EXELIXIS-CABO-19026376

PATIENT
  Age: 71 Year
  Sex: Male
  Weight: 226 kg

DRUGS (2)
  1. CABOMETYX [Suspect]
     Active Substance: CABOZANTINIB S-MALATE
     Dosage: 20 MG, QD
     Route: 048
  2. CABOMETYX [Suspect]
     Active Substance: CABOZANTINIB S-MALATE
     Indication: RENAL CANCER
     Dosage: 40 MG, QD
     Route: 048
     Dates: start: 20191204

REACTIONS (8)
  - Death [Fatal]
  - Stomatitis [Unknown]
  - Erythema [Unknown]
  - Sensitive skin [Unknown]
  - Oral discomfort [Unknown]
  - Decreased appetite [Unknown]
  - Blister [Unknown]
  - Fatigue [Unknown]

NARRATIVE: CASE EVENT DATE: 201912
